FAERS Safety Report 8005351-X (Version None)
Quarter: 2011Q4

REPORT INFORMATION
  Report Type: 
  Country: None (occurrence: None)
  Receive Date: 20111223
  Receipt Date: 20111212
  Transmission Date: 20120403
  Serious: Yes (Hospitalization)
  Sender: FDA-Public Use
  Company Number: JP-SANOFI-AVENTIS-2011SA083112

PATIENT
  Sex: Male

DRUGS (3)
  1. TAXOTERE [Suspect]
     Route: 065
  2. TAXOTERE [Suspect]
     Indication: PROSTATE CANCER
     Route: 065
  3. DEXAMETHASONE [Suspect]
     Indication: PROPHYLAXIS
     Route: 065

REACTIONS (1)
  - PANCREATITIS [None]
